FAERS Safety Report 24135922 (Version 1)
Quarter: 2024Q3

REPORT INFORMATION
  Report Type: Other
  Country: US (occurrence: US)
  Receive Date: 20240725
  Receipt Date: 20240725
  Transmission Date: 20241017
  Serious: Yes (Life-Threatening, Hospitalization, Other)
  Sender: INNOGENIX
  Company Number: US-Innogenix, LLC-2159573

PATIENT
  Age: 25 Year
  Sex: Female

DRUGS (2)
  1. PROPRANOLOL HYDROCHLORIDE [Suspect]
     Active Substance: PROPRANOLOL HYDROCHLORIDE
     Indication: Essential tremor
     Route: 065
  2. ALCOHOL [Concomitant]
     Active Substance: ALCOHOL
     Route: 065

REACTIONS (11)
  - Mental impairment [Recovering/Resolving]
  - Intentional overdose [Unknown]
  - Hypotension [Recovering/Resolving]
  - Hyperkinesia [Recovering/Resolving]
  - Ejection fraction decreased [Recovering/Resolving]
  - Hypokinesia [Recovering/Resolving]
  - Incoherent [Recovering/Resolving]
  - Left ventricular dysfunction [Recovered/Resolved]
  - Electrocardiogram QT prolonged [Recovering/Resolving]
  - Electrocardiogram QRS complex prolonged [Recovering/Resolving]
  - Seizure [Recovering/Resolving]
